FAERS Safety Report 13798365 (Version 1)
Quarter: 2017Q3

REPORT INFORMATION
  Report Type: Spontaneous
  Country: US (occurrence: US)
  Receive Date: 20170727
  Receipt Date: 20170727
  Transmission Date: 20171127
  Serious: Yes (Hospitalization)
  Sender: FDA-Public Use
  Company Number: None

PATIENT
  Age: 75 Year
  Sex: Male
  Weight: 77.11 kg

DRUGS (14)
  1. ENZALUTAMIDE [Suspect]
     Active Substance: ENZALUTAMIDE
     Indication: PROSTATE CANCER
     Route: 048
     Dates: start: 20150718
  2. ASTELLIN NASAL SPRAY [Concomitant]
  3. ASA [Concomitant]
     Active Substance: ASPIRIN
  4. OMEGA 3 [Concomitant]
     Active Substance: OMEGA-3 FATTY ACIDS
  5. GLUCOSAMINE [Concomitant]
     Active Substance: GLUCOSAMINE
  6. COQ10 [Concomitant]
     Active Substance: UBIDECARENONE
  7. CALCIUM [Concomitant]
     Active Substance: CALCIUM
  8. VICAMIN C [Concomitant]
  9. LUPRON [Concomitant]
     Active Substance: LEUPROLIDE ACETATE
  10. FLUTICASONE. [Concomitant]
     Active Substance: FLUTICASONE
  11. ATORVASTATIN [Concomitant]
     Active Substance: ATORVASTATIN
  12. POTASSIUM [Concomitant]
     Active Substance: POTASSIUM
  13. VITAMIN D [Concomitant]
     Active Substance: CHOLECALCIFEROL
  14. MVI [Concomitant]
     Active Substance: VITAMINS

REACTIONS (3)
  - Presyncope [None]
  - Clavicle fracture [None]
  - Fall [None]

NARRATIVE: CASE EVENT DATE: 20170721
